FAERS Safety Report 20678448 (Version 2)
Quarter: 2022Q4

REPORT INFORMATION
  Report Type: Spontaneous
  Country: FR (occurrence: FR)
  Receive Date: 20220406
  Receipt Date: 20221203
  Transmission Date: 20230113
  Serious: Yes (Hospitalization)
  Sender: FDA-Public Use
  Company Number: None

PATIENT
  Age: 33 Year
  Sex: Male

DRUGS (4)
  1. SERTRALINE HYDROCHLORIDE [Suspect]
     Active Substance: SERTRALINE HYDROCHLORIDE
     Indication: Mixed anxiety and depressive disorder
     Dosage: ONGOING 50 MG 1X/D
     Route: 048
     Dates: start: 202107
  2. DIAZEPAM [Suspect]
     Active Substance: DIAZEPAM
     Indication: Mixed anxiety and depressive disorder
     Dosage: IN PROGRESS 5 MG 2X/D
     Route: 048
     Dates: start: 202108
  3. MIANSERIN HYDROCHLORIDE [Suspect]
     Active Substance: MIANSERIN HYDROCHLORIDE
     Indication: Mixed anxiety and depressive disorder
     Dosage: ONGOING 10 MG 1X/D
     Route: 048
     Dates: start: 202107
  4. BICTEGRAVIR\EMTRICITABINE\TENOFOVIR ALAFENAMIDE [Suspect]
     Active Substance: BICTEGRAVIR\EMTRICITABINE\TENOFOVIR ALAFENAMIDE
     Indication: HIV infection
     Dates: start: 20210730, end: 20211018

REACTIONS (1)
  - Pollakiuria [Not Recovered/Not Resolved]

NARRATIVE: CASE EVENT DATE: 20210915
